FAERS Safety Report 21214842 (Version 1)
Quarter: 2022Q3

REPORT INFORMATION
  Report Type: Spontaneous
  Country: US (occurrence: US)
  Receive Date: 20220816
  Receipt Date: 20220816
  Transmission Date: 20221027
  Serious: No
  Sender: FDA-Public Use
  Company Number: US-BIOGEN-2022BI01145683

PATIENT
  Sex: Female

DRUGS (6)
  1. TECFIDERA [Suspect]
     Active Substance: DIMETHYL FUMARATE
     Indication: Multiple sclerosis
     Route: 050
  2. CALCIUM GLUCONATE [Concomitant]
     Active Substance: CALCIUM GLUCONATE
     Route: 050
  3. VITAMIN C [Concomitant]
     Active Substance: ASCORBIC ACID
     Route: 050
  4. BIOTIN [Concomitant]
     Active Substance: BIOTIN
     Route: 050
  5. CLARITIN [Concomitant]
     Active Substance: LORATADINE
     Route: 050
  6. COLLAGEN [Concomitant]
     Active Substance: COLLAGEN
     Route: 050

REACTIONS (2)
  - Intentional product misuse [Unknown]
  - Hot flush [Unknown]
